FAERS Safety Report 20418531 (Version 3)
Quarter: 2022Q1

REPORT INFORMATION
  Report Type: Report from Study
  Country: TR (occurrence: TR)
  Receive Date: 20220202
  Receipt Date: 20220314
  Transmission Date: 20220423
  Serious: Yes (Death)
  Sender: FDA-Public Use
  Company Number: TR-PFIZER INC-202200160359

PATIENT
  Age: 26 Year
  Sex: Male
  Weight: 61.3 kg

DRUGS (8)
  1. INOTUZUMAB OZOGAMICIN [Suspect]
     Active Substance: INOTUZUMAB OZOGAMICIN
     Indication: Acute lymphocytic leukaemia
     Dosage: 1.2 MG/M2, CYCLIC (ADMINISTERED IN 3 DIVIDED DOSES:DAY 1 DAY 8, DAY 15)
     Route: 042
     Dates: start: 20210820, end: 20210924
  2. TEICOPLANIN [Concomitant]
     Active Substance: TEICOPLANIN
     Indication: Febrile neutropenia
     Dosage: 400 MG, 1X/DAY
     Route: 042
     Dates: start: 20211022, end: 20211116
  3. PIPERACILLIN AND TAZOBACTAM [Concomitant]
     Active Substance: PIPERACILLIN SODIUM\TAZOBACTAM SODIUM
     Indication: Febrile neutropenia
     Dosage: 4.5 G, 4X/DAY
     Route: 042
     Dates: start: 20211021, end: 20211023
  4. METRONIDAZOLE [Concomitant]
     Active Substance: METRONIDAZOLE
     Indication: Diarrhoea
     Dosage: 500 MG, 3X/DAY
     Route: 042
     Dates: start: 20211026, end: 20211113
  5. MEROPENEM [Concomitant]
     Active Substance: MEROPENEM
     Indication: Febrile neutropenia
     Dosage: 2 G, 2X/DAY
     Route: 042
     Dates: start: 20211023, end: 20211117
  6. AMPHOTERICIN B [Concomitant]
     Active Substance: AMPHOTERICIN B
     Indication: Hepatosplenic candidiasis
     Dosage: 5 MG/KG, 1X/DAY
     Route: 042
     Dates: start: 20211109, end: 20211115
  7. CASPOFUNGIN [Concomitant]
     Active Substance: CASPOFUNGIN
     Indication: Hepatosplenic candidiasis
     Dosage: 50 MG, 1X/DAY
     Route: 042
     Dates: start: 20211114, end: 20211115
  8. METHYLPREDNISOLONE [Concomitant]
     Active Substance: METHYLPREDNISOLONE
     Indication: Graft versus host disease in liver
     Dosage: 1 G, 1X/DAY
     Route: 042
     Dates: start: 20211026, end: 20211028

REACTIONS (3)
  - Venoocclusive disease [Fatal]
  - Graft versus host disease in liver [Fatal]
  - Hepatosplenic candidiasis [Fatal]
